FAERS Safety Report 25466230 (Version 2)
Quarter: 2025Q3

REPORT INFORMATION
  Report Type: Report from Study
  Country: EU (occurrence: EU)
  Receive Date: 20250623
  Receipt Date: 20250711
  Transmission Date: 20251020
  Serious: Yes (Death, Other)
  Sender: TAKEDA
  Company Number: EU-TAKEDA-2025TUS057052

PATIENT
  Sex: Female

DRUGS (2)
  1. FRUQUINTINIB [Suspect]
     Active Substance: FRUQUINTINIB
     Indication: Colorectal cancer metastatic
     Dosage: 5 MILLIGRAM, QD
     Dates: start: 20250307, end: 20250327
  2. FRUQUINTINIB [Suspect]
     Active Substance: FRUQUINTINIB

REACTIONS (1)
  - Colorectal cancer metastatic [Fatal]
